FAERS Safety Report 19170547 (Version 1)
Quarter: 2021Q2

REPORT INFORMATION
  Report Type: Spontaneous
  Country: US (occurrence: US)
  Receive Date: 20210423
  Receipt Date: 20210423
  Transmission Date: 20210717
  Serious: No
  Sender: FDA-Public Use
  Company Number: US-CELGENEUS-USA-20210403075

PATIENT
  Sex: Female

DRUGS (2)
  1. REVLIMID [Suspect]
     Active Substance: LENALIDOMIDE
     Indication: GASTRIC CANCER
     Dosage: 25 MILLIGRAM
     Route: 048
     Dates: start: 20141119
  2. REVLIMID [Suspect]
     Active Substance: LENALIDOMIDE
     Indication: PLASMA CELL MYELOMA IN REMISSION
     Dosage: 5 MILLIGRAM
     Route: 048
     Dates: start: 202009

REACTIONS (1)
  - Peripheral swelling [Unknown]
